FAERS Safety Report 6037765-1 (Version None)
Quarter: 2009Q1

REPORT INFORMATION
  Report Type: 
  Country: None (occurrence: None)
  Receive Date: 20090113
  Receipt Date: 20090107
  Transmission Date: 20090719
  Serious: Yes (Hospitalization)
  Sender: FDA-Public Use
  Company Number: FABR-1000601

PATIENT
  Age: 27 Year
  Sex: Male
  Weight: 67 kg

DRUGS (6)
  1. FABRAZYME [Suspect]
     Indication: FABRY'S DISEASE
     Dosage: INTRAVENOUS
     Route: 042
     Dates: start: 20030708
  2. BENADRYL [Concomitant]
  3. ACETAMINOPHEN [Concomitant]
  4. UNKNOWN CORTICOSTEROID [Concomitant]
  5. PERCOCET [Concomitant]
  6. UNKNOWN MEDICATIONS [Concomitant]

REACTIONS (23)
  - ABDOMINAL DISCOMFORT [None]
  - ANXIETY [None]
  - BRONCHOSPASM [None]
  - CHEST DISCOMFORT [None]
  - CHILLS [None]
  - DIARRHOEA [None]
  - DYSPNOEA [None]
  - ERYTHEMA [None]
  - HYPERHIDROSIS [None]
  - INFUSION RELATED REACTION [None]
  - NASAL CONGESTION [None]
  - NASOPHARYNGITIS [None]
  - NAUSEA [None]
  - OEDEMA PERIPHERAL [None]
  - PAIN [None]
  - PARAESTHESIA [None]
  - PRESYNCOPE [None]
  - PRURITUS [None]
  - PYREXIA [None]
  - SINUSITIS [None]
  - SPINAL FUSION SURGERY [None]
  - TOOTH DISORDER [None]
  - VOMITING [None]
